FAERS Safety Report 4963050-2 (Version None)
Quarter: 2006Q2

REPORT INFORMATION
  Report Type: 
  Country: None (occurrence: None)
  Receive Date: 20060405
  Receipt Date: 20060327
  Transmission Date: 20061013
  Serious: Yes (Hospitalization)
  Sender: FDA-Public Use
  Company Number: US-JNJFOC-20060307224

PATIENT
  Sex: Female
  Weight: 61.24 kg

DRUGS (7)
  1. DURAGESIC-100 [Suspect]
     Route: 062
  2. MAXZIDE [Concomitant]
     Route: 048
  3. MAXZIDE [Concomitant]
     Indication: BLOOD PRESSURE
     Route: 048
  4. LIPITOR [Concomitant]
     Route: 048
  5. NEXIUM [Concomitant]
     Indication: ANTACID THERAPY
     Route: 048
  6. PROZAC [Concomitant]
     Route: 048
  7. MICARDIS [Concomitant]
     Indication: BLOOD PRESSURE
     Route: 048

REACTIONS (1)
  - BACK INJURY [None]
